FAERS Safety Report 11364710 (Version 1)
Quarter: 2015Q3

REPORT INFORMATION
  Report Type: Spontaneous
  Country: US (occurrence: None)
  Receive Date: 20150810
  Receipt Date: 20150810
  Transmission Date: 20151125
  Serious: Yes (Hospitalization)
  Sender: FDA-Public Use
  Company Number: None

PATIENT
  Age: 72 Year
  Sex: Male
  Weight: 115.9 kg

DRUGS (13)
  1. LUCENTIS [Suspect]
     Active Substance: RANIBIZUMAB
     Indication: DIABETIC RETINAL OEDEMA
     Dosage: INTRAVITREAL
     Dates: start: 20140120
  2. LANTUS [Concomitant]
     Active Substance: INSULIN GLARGINE
  3. GLUCOPHAGE [Concomitant]
     Active Substance: METFORMIN HYDROCHLORIDE
  4. MEVACORE [Concomitant]
  5. XARELTO [Concomitant]
     Active Substance: RIVAROXABAN
  6. AMARYL [Concomitant]
     Active Substance: GLIMEPIRIDE
  7. ALEVE [Concomitant]
     Active Substance: NAPROXEN SODIUM
  8. NORVASC [Concomitant]
     Active Substance: AMLODIPINE BESYLATE
  9. MONOPRIL [Concomitant]
     Active Substance: FOSINOPRIL SODIUM
  10. LASIX [Concomitant]
     Active Substance: FUROSEMIDE
  11. VICTOZA [Concomitant]
     Active Substance: LIRAGLUTIDE
  12. TRAMADOL. [Concomitant]
     Active Substance: TRAMADOL
  13. FENOFIBRATE. [Concomitant]
     Active Substance: FENOFIBRATE

REACTIONS (1)
  - Cerebrovascular accident [None]

NARRATIVE: CASE EVENT DATE: 20141123
